FAERS Safety Report 9028466 (Version 2)
Quarter: 2013Q1

REPORT INFORMATION
  Report Type: Spontaneous
  Country: IT (occurrence: IT)
  Receive Date: 20130124
  Receipt Date: 20130213
  Transmission Date: 20140127
  Serious: Yes (Hospitalization)
  Sender: FDA-Public Use
  Company Number: IT-JNJFOC-20130105769

PATIENT
  Age: 50 Year
  Sex: Female

DRUGS (3)
  1. DUROGESIC [Suspect]
     Indication: QUADRIPARESIS
     Route: 062
     Dates: start: 20120901, end: 20121012
  2. METADONE [Suspect]
     Indication: DRUG WITHDRAWAL SYNDROME
     Route: 048
     Dates: start: 20120901, end: 20121012
  3. SERTRALINE [Suspect]
     Indication: DEPRESSION
     Route: 048
     Dates: start: 20120901, end: 20121012

REACTIONS (4)
  - Psychomotor skills impaired [Unknown]
  - Alanine aminotransferase increased [Unknown]
  - Hypertension [Unknown]
  - Sopor [Unknown]
